FAERS Safety Report 10458481 (Version 1)
Quarter: 2014Q3

REPORT INFORMATION
  Report Type: Spontaneous
  Country: US (occurrence: None)
  Receive Date: 20140916
  Receipt Date: 20140916
  Transmission Date: 20150326
  Serious: No
  Sender: FDA-Public Use
  Company Number: None

PATIENT
  Age: 61 Year
  Sex: Female

DRUGS (5)
  1. SYNTHROID [Concomitant]
     Active Substance: LEVOTHYROXINE SODIUM
  2. RIBAVIRIN. [Concomitant]
     Active Substance: RIBAVIRIN
  3. SOVALDI [Suspect]
     Active Substance: SOFOSBUVIR
     Indication: HEPATITIS C
     Route: 048
     Dates: start: 20140827
  4. GABAPENTIN. [Concomitant]
     Active Substance: GABAPENTIN
  5. OLYSIO [Suspect]
     Active Substance: SIMEPREVIR
     Indication: HEPATITIS C
     Route: 048
     Dates: start: 20140827

REACTIONS (6)
  - Wheezing [None]
  - Dyspnoea [None]
  - Blood bilirubin increased [None]
  - Insomnia [None]
  - Fatigue [None]
  - Hepatic pain [None]

NARRATIVE: CASE EVENT DATE: 201408
